FAERS Safety Report 25369960 (Version 1)
Quarter: 2025Q2

REPORT INFORMATION
  Report Type: Report from Study
  Country: IN (occurrence: IN)
  Receive Date: 20250528
  Receipt Date: 20250528
  Transmission Date: 20250717
  Serious: Yes (Death, Other)
  Sender: PFIZER
  Company Number: IN-TAKEDA-2024TUS014740

PATIENT
  Age: 66 Year
  Sex: Male

DRUGS (2)
  1. ADCETRIS [Suspect]
     Active Substance: BRENTUXIMAB VEDOTIN
     Indication: Anaplastic large cell lymphoma T- and null-cell types recurrent
     Route: 042
     Dates: start: 20231021
  2. ADCETRIS [Suspect]
     Active Substance: BRENTUXIMAB VEDOTIN
     Indication: Cutaneous T-cell lymphoma

REACTIONS (7)
  - Death [Fatal]
  - Leukopenia [Unknown]
  - Herpes zoster [Unknown]
  - General physical health deterioration [Unknown]
  - Furuncle [Unknown]
  - Pyrexia [Unknown]
  - Incorrect product administration duration [Unknown]
